FAERS Safety Report 9750153 (Version 3)
Quarter: 2015Q3

REPORT INFORMATION
  Report Type: Spontaneous
  Country: GR (occurrence: GR)
  Receive Date: 20131212
  Receipt Date: 20150730
  Transmission Date: 20151125
  Serious: No
  Sender: FDA-Public Use
  Company Number: GR-GILEAD-GR-CVT-100034

PATIENT
  Age: 86 Year
  Sex: Male

DRUGS (9)
  1. ACETYLSALICYLIC ACID [Concomitant]
     Active Substance: ASPIRIN
     Indication: CORONARY ARTERY DISEASE
  2. TAMSULOSIN [Concomitant]
     Active Substance: TAMSULOSIN
     Indication: BENIGN PROSTATIC HYPERPLASIA
  3. RANEXA [Suspect]
     Active Substance: RANOLAZINE
     Indication: PRODUCT USED FOR UNKNOWN INDICATION
     Dates: start: 2009, end: 201001
  4. METOPROLOL                         /00376901/ [Concomitant]
     Indication: CORONARY ARTERY DISEASE
  5. AMIODARONE                         /00133101/ [Concomitant]
     Active Substance: AMIODARONE
     Indication: CORONARY ARTERY DISEASE
  6. EZETIMIBE. [Concomitant]
     Active Substance: EZETIMIBE
     Indication: DYSLIPIDAEMIA
  7. ISOSORBIDE MONONITRATE. [Concomitant]
     Active Substance: ISOSORBIDE MONONITRATE
     Indication: CORONARY ARTERY DISEASE
  8. ATORVASTATIN                       /01326101/ [Concomitant]
     Active Substance: ATORVASTATIN
     Indication: DYSLIPIDAEMIA
  9. GALANTAMINE. [Concomitant]
     Active Substance: GALANTAMINE
     Indication: DEMENTIA

REACTIONS (2)
  - Dizziness [Recovering/Resolving]
  - Chromaturia [Recovered/Resolved]

NARRATIVE: CASE EVENT DATE: 20091220
